FAERS Safety Report 5412351-2 (Version None)
Quarter: 2007Q3

REPORT INFORMATION
  Report Type: 
  Country: None (occurrence: None)
  Receive Date: 20070813
  Receipt Date: 20070808
  Transmission Date: 20080115
  Serious: Yes (Hospitalization)
  Sender: FDA-Public Use
  Company Number: DK-AVENTIS-200717138GDDC

PATIENT
  Age: 95 Year
  Sex: Female

DRUGS (2)
  1. LANTUS [Suspect]
     Dosage: DOSE QUANTITY: 16
     Route: 058
  2. OPTIPEN (INSULIN PUMP) [Suspect]

REACTIONS (3)
  - HYPERGLYCAEMIA [None]
  - KETOACIDOSIS [None]
  - PHARMACEUTICAL PRODUCT COMPLAINT [None]
